FAERS Safety Report 4874119-5 (Version None)
Quarter: 2006Q1

REPORT INFORMATION
  Report Type: 
  Country: None (occurrence: None)
  Receive Date: 20060104
  Receipt Date: 20051219
  Transmission Date: 20060701
  Serious: Yes (Other)
  Sender: FDA-Public Use
  Company Number: 2005170171

PATIENT
  Age: 71 Year
  Sex: Male
  Weight: 77.1115 kg

DRUGS (3)
  1. VIAGRA [Suspect]
     Indication: ERECTILE DYSFUNCTION
     Dosage: 100 MG (100 MG AS NECESSARY)
     Dates: start: 20040101, end: 20050701
  2. PLENDIL [Concomitant]
  3. ALBUTEROL [Concomitant]

REACTIONS (1)
  - BLINDNESS UNILATERAL [None]
